FAERS Safety Report 17851449 (Version 4)
Quarter: 2020Q2

REPORT INFORMATION
  Report Type: Report from Study
  Country: US (occurrence: US)
  Receive Date: 20200602
  Receipt Date: 20200615
  Transmission Date: 20200714
  Serious: Yes (Other)
  Sender: FDA-Public Use
  Company Number: US-ROCHE-2612542

PATIENT
  Sex: Female
  Weight: 65.83 kg

DRUGS (19)
  1. ATORVASTATIN [Concomitant]
     Active Substance: ATORVASTATIN
  2. LINZESS [Concomitant]
     Active Substance: LINACLOTIDE
  3. AZELASTINE. [Concomitant]
     Active Substance: AZELASTINE HYDROCHLORIDE
  4. BOTOX [Concomitant]
     Active Substance: ONABOTULINUMTOXINA
  5. BACLOFEN. [Concomitant]
     Active Substance: BACLOFEN
  6. ONDANSETRON [Concomitant]
     Active Substance: ONDANSETRON
  7. TRAZODONE [Concomitant]
     Active Substance: TRAZODONE HYDROCHLORIDE
  8. LAMOTRIGINE. [Concomitant]
     Active Substance: LAMOTRIGINE
  9. TRAMADOL. [Concomitant]
     Active Substance: TRAMADOL
  10. ZANTAC [Concomitant]
     Active Substance: RANITIDINE HYDROCHLORIDE
  11. TOPIRAMATE. [Concomitant]
     Active Substance: TOPIRAMATE
  12. FLUTICASONE. [Concomitant]
     Active Substance: FLUTICASONE
  13. OCREVUS [Suspect]
     Active Substance: OCRELIZUMAB
     Indication: RELAPSING MULTIPLE SCLEROSIS
     Dosage: DATE OF TREATMENT: 19/OCT/2017, 28/JUN/2018, 19/DEC/2018, 12/JUN/2019, 11/DEC/2019
     Route: 042
     Dates: start: 20170503
  14. OCREVUS [Suspect]
     Active Substance: OCRELIZUMAB
     Indication: RELAPSING-REMITTING MULTIPLE SCLEROSIS
     Route: 042
  15. SERTRALINE [Concomitant]
     Active Substance: SERTRALINE HYDROCHLORIDE
  16. FAMOTIDINE. [Concomitant]
     Active Substance: FAMOTIDINE
  17. LANSOPRAZOLE. [Concomitant]
     Active Substance: LANSOPRAZOLE
  18. NEURONTIN [Concomitant]
     Active Substance: GABAPENTIN
  19. MIRALAX [Concomitant]
     Active Substance: POLYETHYLENE GLYCOL 3350

REACTIONS (7)
  - Diarrhoea [Not Recovered/Not Resolved]
  - Weight increased [Not Recovered/Not Resolved]
  - Herpes zoster [Recovering/Resolving]
  - Impaired gastric emptying [Not Recovered/Not Resolved]
  - Depression [Not Recovered/Not Resolved]
  - Muscular weakness [Recovered/Resolved]
  - Abdominal pain upper [Not Recovered/Not Resolved]

NARRATIVE: CASE EVENT DATE: 2020
